FAERS Safety Report 5949862-7 (Version None)
Quarter: 2008Q4

REPORT INFORMATION
  Report Type: 
  Country: None (occurrence: None)
  Receive Date: 20081112
  Receipt Date: 20081030
  Transmission Date: 20090506
  Serious: Yes (Hospitalization)
  Sender: FDA-Public Use
  Company Number: US-BIOGENIDEC-2008BI007462

PATIENT
  Age: 52 Year
  Sex: Female

DRUGS (1)
  1. TYSABRI [Suspect]
     Indication: MULTIPLE SCLEROSIS
     Route: 042
     Dates: start: 20070510, end: 20080125

REACTIONS (5)
  - MECHANICAL VENTILATION [None]
  - MULTIPLE SCLEROSIS RELAPSE [None]
  - OPPORTUNISTIC INFECTION [None]
  - PNEUMONIA ASPIRATION [None]
  - URINARY TRACT INFECTION [None]
